FAERS Safety Report 10874470 (Version 1)
Quarter: 2015Q1

REPORT INFORMATION
  Report Type: Spontaneous
  Country: DE (occurrence: DE)
  Receive Date: 20150227
  Receipt Date: 20150227
  Transmission Date: 20150721
  Serious: Yes (Death, Hospitalization, Other)
  Sender: FDA-Public Use
  Company Number: DE-ROXANE LABORATORIES, INC.-2015-RO-00338RO

PATIENT
  Age: 73 Year
  Sex: Male

DRUGS (8)
  1. ANTI-THYMOCYTE GLOBULIN (RABBIT) NOS [Suspect]
     Active Substance: LAPINE T-LYMPHOCYTE IMMUNE GLOBULIN
     Indication: STEM CELL TRANSPLANT
     Route: 065
  2. MYCOPHENOLATE MOFETIL. [Suspect]
     Active Substance: MYCOPHENOLATE MOFETIL
     Indication: STEM CELL TRANSPLANT
     Route: 065
  3. TREOSULFANE [Suspect]
     Active Substance: TREOSULFAN
     Indication: STEM CELL TRANSPLANT
     Route: 065
  4. COTRIMOXAZOLE [Suspect]
     Active Substance: SULFAMETHOXAZOLE\TRIMETHOPRIM
     Indication: INFECTION PROPHYLAXIS
     Route: 065
  5. ACYCLOVIR. [Suspect]
     Active Substance: ACYCLOVIR
     Indication: INFECTION PROPHYLAXIS
     Route: 065
  6. POSACONAZOLE [Suspect]
     Active Substance: POSACONAZOLE
     Indication: INFECTION PROPHYLAXIS
     Route: 065
  7. CYCLOSPORINE. [Suspect]
     Active Substance: CYCLOSPORINE
     Indication: STEM CELL TRANSPLANT
     Route: 065
  8. FLUDARABINE [Suspect]
     Active Substance: FLUDARABINE PHOSPHATE
     Indication: STEM CELL TRANSPLANT
     Route: 065

REACTIONS (6)
  - Acute graft versus host disease in skin [Recovered/Resolved]
  - Respiratory failure [Recovered/Resolved]
  - Atypical pneumonia [Unknown]
  - Bone infarction [Unknown]
  - Osteomyelitis fungal [Fatal]
  - Zygomycosis [Fatal]
